FAERS Safety Report 21962710 (Version 1)
Quarter: 2023Q1

REPORT INFORMATION
  Report Type: Spontaneous
  Country: CA (occurrence: CA)
  Receive Date: 20230207
  Receipt Date: 20230207
  Transmission Date: 20230418
  Serious: Yes (Other)
  Sender: FDA-Public Use
  Company Number: CA-002147023-NVSC2023CA022957

PATIENT
  Age: 46 Year
  Sex: Male

DRUGS (37)
  1. METHOTREXATE [Suspect]
     Active Substance: METHOTREXATE
     Indication: Product used for unknown indication
     Dosage: UNK
     Route: 065
  2. METHOTREXATE [Suspect]
     Active Substance: METHOTREXATE
     Dosage: UNK
     Route: 065
  3. OMALIZUMAB [Suspect]
     Active Substance: OMALIZUMAB
     Indication: Chronic spontaneous urticaria
     Dosage: UNK
     Route: 058
  4. OMALIZUMAB [Suspect]
     Active Substance: OMALIZUMAB
     Dosage: UNK
     Route: 058
  5. OMALIZUMAB [Suspect]
     Active Substance: OMALIZUMAB
     Dosage: 450 MG
     Route: 058
  6. OMALIZUMAB [Suspect]
     Active Substance: OMALIZUMAB
     Dosage: 300 MG
     Route: 058
  7. OMALIZUMAB [Suspect]
     Active Substance: OMALIZUMAB
     Dosage: 300 MG
     Route: 058
  8. OMALIZUMAB [Suspect]
     Active Substance: OMALIZUMAB
     Dosage: 300 MG
     Route: 058
  9. OMALIZUMAB [Suspect]
     Active Substance: OMALIZUMAB
     Dosage: 450 MG
     Route: 058
  10. OMALIZUMAB [Suspect]
     Active Substance: OMALIZUMAB
     Dosage: 450 MG
     Route: 058
  11. OMALIZUMAB [Suspect]
     Active Substance: OMALIZUMAB
     Dosage: 300 MG
     Route: 058
  12. OMALIZUMAB [Suspect]
     Active Substance: OMALIZUMAB
     Dosage: UNK
     Route: 058
  13. OMALIZUMAB [Suspect]
     Active Substance: OMALIZUMAB
     Dosage: 450 MG
     Route: 058
  14. OMALIZUMAB [Suspect]
     Active Substance: OMALIZUMAB
     Dosage: UNK
     Route: 058
  15. OMALIZUMAB [Suspect]
     Active Substance: OMALIZUMAB
     Dosage: UNK
     Route: 058
  16. OMALIZUMAB [Suspect]
     Active Substance: OMALIZUMAB
     Dosage: UNK
     Route: 058
  17. OMALIZUMAB [Suspect]
     Active Substance: OMALIZUMAB
     Dosage: 450 MG
     Route: 058
  18. OMALIZUMAB [Suspect]
     Active Substance: OMALIZUMAB
     Dosage: 450 MG
     Route: 058
  19. OMALIZUMAB [Suspect]
     Active Substance: OMALIZUMAB
     Dosage: 450 MG
     Route: 058
  20. OMALIZUMAB [Suspect]
     Active Substance: OMALIZUMAB
     Dosage: 450 MG
     Route: 058
  21. OMALIZUMAB [Suspect]
     Active Substance: OMALIZUMAB
     Indication: Chronic spontaneous urticaria
     Dosage: 300 MG
     Route: 058
  22. OMALIZUMAB [Suspect]
     Active Substance: OMALIZUMAB
     Dosage: 300 MG
     Route: 058
  23. OMALIZUMAB [Suspect]
     Active Substance: OMALIZUMAB
     Dosage: UNK
     Route: 058
  24. OMALIZUMAB [Suspect]
     Active Substance: OMALIZUMAB
     Dosage: 300 MG
     Route: 058
  25. OMALIZUMAB [Suspect]
     Active Substance: OMALIZUMAB
     Dosage: 300 MG
     Route: 058
  26. OMALIZUMAB [Suspect]
     Active Substance: OMALIZUMAB
     Dosage: 450 MG
     Route: 058
  27. OMALIZUMAB [Suspect]
     Active Substance: OMALIZUMAB
     Dosage: UNK
     Route: 058
  28. OMALIZUMAB [Suspect]
     Active Substance: OMALIZUMAB
     Dosage: UNK
     Route: 058
  29. OMALIZUMAB [Suspect]
     Active Substance: OMALIZUMAB
     Dosage: UNK
     Route: 058
  30. OMALIZUMAB [Suspect]
     Active Substance: OMALIZUMAB
     Dosage: 450 MG
     Route: 058
  31. OMALIZUMAB [Suspect]
     Active Substance: OMALIZUMAB
     Dosage: 450 MG
     Route: 058
  32. OMALIZUMAB [Suspect]
     Active Substance: OMALIZUMAB
     Dosage: 450 MG
     Route: 058
  33. OMALIZUMAB [Suspect]
     Active Substance: OMALIZUMAB
     Dosage: UNK
     Route: 058
  34. OMALIZUMAB [Suspect]
     Active Substance: OMALIZUMAB
     Dosage: UNK
     Route: 058
  35. CETIRIZINE HYDROCHLORIDE [Concomitant]
     Active Substance: CETIRIZINE HYDROCHLORIDE
     Indication: Product used for unknown indication
     Dosage: 2 DOSAGE FORM, QD
     Route: 065
  36. HYDROXYZINE [Concomitant]
     Active Substance: HYDROXYZINE HYDROCHLORIDE
     Indication: Product used for unknown indication
     Dosage: 2 DOSAGE FORM, QD
     Route: 065
  37. PREDNISONE [Concomitant]
     Active Substance: PREDNISONE
     Indication: Product used for unknown indication
     Dosage: 1 DOSAGE FORM, QD
     Route: 065

REACTIONS (14)
  - Swelling [Not Recovered/Not Resolved]
  - Blood pressure increased [Not Recovered/Not Resolved]
  - Gastrooesophageal reflux disease [Not Recovered/Not Resolved]
  - Lip swelling [Not Recovered/Not Resolved]
  - Periorbital swelling [Not Recovered/Not Resolved]
  - Weight decreased [Not Recovered/Not Resolved]
  - Pruritus [Not Recovered/Not Resolved]
  - Dyspnoea [Not Recovered/Not Resolved]
  - Rash [Not Recovered/Not Resolved]
  - Urticaria [Not Recovered/Not Resolved]
  - Chest pain [Not Recovered/Not Resolved]
  - Product dose omission issue [Not Recovered/Not Resolved]
  - Inappropriate schedule of product administration [Not Recovered/Not Resolved]
  - Drug ineffective [Not Recovered/Not Resolved]
